FAERS Safety Report 6741532-0 (Version None)
Quarter: 2010Q2

REPORT INFORMATION
  Report Type: 
  Country: None (occurrence: None)
  Receive Date: 20100524
  Receipt Date: 20100507
  Transmission Date: 20101027
  Serious: Yes (Hospitalization, Other)
  Sender: FDA-Public Use
  Company Number: AUR-APL-2009-00506

PATIENT
  Age: 40 Year
  Sex: Male

DRUGS (10)
  1. MIRTAZAPINE [Suspect]
     Dosage: 15MG, DAILY, ORAL
     Route: 048
  2. RISPERIDONE [Suspect]
     Dosage: 15MG, DAILY, ORAL
     Route: 048
  3. DULOXETINE HYDROCHLORIDE [Suspect]
     Dosage: 60 MG
  4. ABILIFY [Suspect]
     Indication: SCHIZOAFFECTIVE DISORDER
     Dosage: 15 MG DAILY ORAL
     Route: 048
     Dates: start: 20081001
  5. QUETIAPINE [Suspect]
  6. VALPROATE SODIUM [Suspect]
  7. VENLAFAXINE [Suspect]
     Dosage: 225MG
  8. EFFEXOR [Concomitant]
  9. LITHIUM [Concomitant]
  10. DRUG USED IN DIABETES [Concomitant]

REACTIONS (9)
  - BIPOLAR DISORDER [None]
  - DEPRESSION [None]
  - DIABETES MELLITUS [None]
  - EXTRAPYRAMIDAL DISORDER [None]
  - GAMMA-GLUTAMYLTRANSFERASE INCREASED [None]
  - HEPATIC FUNCTION ABNORMAL [None]
  - HYPOTHYROIDISM [None]
  - METABOLIC SYNDROME [None]
  - WEIGHT INCREASED [None]
